FAERS Safety Report 20893443 (Version 1)
Quarter: 2022Q2

REPORT INFORMATION
  Report Type: Report from Study
  Country: BR (occurrence: BR)
  Receive Date: 20220531
  Receipt Date: 20220531
  Transmission Date: 20220721
  Serious: Yes (Other)
  Sender: FDA-Public Use
  Company Number: BR-JNJFOC-20220553672

PATIENT
  Age: 6 Decade
  Sex: Female

DRUGS (3)
  1. SIMPONI [Suspect]
     Active Substance: GOLIMUMAB
     Indication: Rheumatoid arthritis
     Route: 058
     Dates: start: 20190101
  2. SIMPONI [Suspect]
     Active Substance: GOLIMUMAB
  3. CHLOROQUINE [Concomitant]
     Active Substance: CHLOROQUINE

REACTIONS (3)
  - Diabetes mellitus [Not Recovered/Not Resolved]
  - Mycobacterium tuberculosis complex test positive [Unknown]
  - Hypersensitivity [Unknown]
